FAERS Safety Report 21841771 (Version 1)
Quarter: 2023Q1

REPORT INFORMATION
  Report Type: Spontaneous
  Country: JP (occurrence: JP)
  Receive Date: 20230110
  Receipt Date: 20230110
  Transmission Date: 20230417
  Serious: Yes (Hospitalization, Disabling)
  Sender: FDA-Public Use
  Company Number: JP-KERYX BIOPHARMACEUTICALS INC.-JP-AKEB-22-022328

PATIENT

DRUGS (1)
  1. FERRIC CITRATE ANHYDROUS [Suspect]
     Active Substance: FERRIC CITRATE ANHYDROUS
     Indication: Product used for unknown indication
     Dosage: UNK
     Route: 048
     Dates: start: 2019, end: 20210311

REACTIONS (2)
  - Myocardial infarction [Unknown]
  - Leg amputation [Unknown]

NARRATIVE: CASE EVENT DATE: 20210311
